FAERS Safety Report 18753010 (Version 3)
Quarter: 2021Q1

REPORT INFORMATION
  Report Type: Report from Study
  Country: CA (occurrence: CA)
  Receive Date: 20210118
  Receipt Date: 20210324
  Transmission Date: 20210419
  Serious: Yes (Other)
  Sender: FDA-Public Use
  Company Number: CA-GLAXOSMITHKLINE-CA2020AMR259040

PATIENT
  Sex: Female

DRUGS (2)
  1. MEPOLIZUMAB [Suspect]
     Active Substance: MEPOLIZUMAB
     Indication: ASTHMA
     Dosage: 100 MG, Z, 1 MONTHLY
     Route: 058
     Dates: start: 20190226
  2. PREDNISONE. [Suspect]
     Active Substance: PREDNISONE
     Indication: PRODUCT USED FOR UNKNOWN INDICATION
     Dosage: UNK

REACTIONS (6)
  - Pulmonary pain [Unknown]
  - Food allergy [Unknown]
  - Ill-defined disorder [Unknown]
  - Asthma [Unknown]
  - Product dose omission issue [Unknown]
  - Pneumonia [Unknown]
